FAERS Safety Report 23662797 (Version 1)
Quarter: 2024Q1

REPORT INFORMATION
  Report Type: Spontaneous
  Country: US (occurrence: US)
  Receive Date: 20240322
  Receipt Date: 20240322
  Transmission Date: 20240409
  Serious: No
  Sender: FDA-Public Use
  Company Number: US-HALEON-USCH2024015318

PATIENT
  Sex: Female

DRUGS (2)
  1. ADVIL PM NOS [Suspect]
     Active Substance: DIPHENHYDRAMINE\IBUPROFEN
     Indication: Sleep disorder
     Dosage: 2 DF
  2. ADVIL PM NOS [Suspect]
     Active Substance: DIPHENHYDRAMINE\IBUPROFEN
     Dosage: 1 DF

REACTIONS (2)
  - Somnolence [Unknown]
  - Incorrect dose administered [Unknown]
